FAERS Safety Report 12005172 (Version 1)
Quarter: 2016Q1

REPORT INFORMATION
  Report Type: Spontaneous
  Country: US (occurrence: US)
  Receive Date: 20160204
  Receipt Date: 20160204
  Transmission Date: 20160526
  Serious: Yes (Hospitalization)
  Sender: FDA-Public Use
  Company Number: US-BIOGEN-2014BI064498

PATIENT
  Age: 42 Year
  Sex: Male

DRUGS (4)
  1. MORPHINE [Concomitant]
     Active Substance: MORPHINE
     Indication: BACK PAIN
     Route: 037
  2. AVONEX [Suspect]
     Active Substance: INTERFERON BETA-1A
     Indication: MULTIPLE SCLEROSIS
     Route: 030
     Dates: start: 20070602, end: 20100406
  3. BUPIVACAINE [Concomitant]
     Active Substance: BUPIVACAINE
     Indication: BACK PAIN
     Route: 037
  4. BACLOFEN. [Concomitant]
     Active Substance: BACLOFEN
     Indication: BACK PAIN
     Route: 037

REACTIONS (7)
  - Back pain [Not Recovered/Not Resolved]
  - Middle insomnia [Recovered/Resolved]
  - Road traffic accident [Recovered/Resolved]
  - Neck surgery [Recovered/Resolved]
  - Coordination abnormal [Recovered/Resolved]
  - Spinal operation [Recovered/Resolved]
  - Musculoskeletal disorder [Recovered/Resolved]

NARRATIVE: CASE EVENT DATE: 20070602
